FAERS Safety Report 5935487-6 (Version None)
Quarter: 2008Q4

REPORT INFORMATION
  Report Type: 
  Country: None (occurrence: None)
  Receive Date: 20081030
  Receipt Date: 20081002
  Transmission Date: 20090506
  Serious: No
  Sender: FDA-Public Use
  Company Number: US-BAYER-200810609BCC

PATIENT
  Age: 70 Year
  Sex: Female

DRUGS (4)
  1. ALEVE (CAPLET) [Suspect]
     Indication: ARTHRALGIA
     Route: 048
     Dates: start: 20080101
  2. GLUCOSAMINE [Concomitant]
  3. CHONDROITIN [Concomitant]
  4. COQ10 [Concomitant]

REACTIONS (1)
  - TOOTH DISORDER [None]
